FAERS Safety Report 4746782-0 (Version None)
Quarter: 2005Q3

REPORT INFORMATION
  Report Type: 
  Country: None (occurrence: None)
  Receive Date: 20050817
  Receipt Date: 20050728
  Transmission Date: 20060218
  Serious: Yes (Life-Threatening)
  Sender: FDA-Public Use
  Company Number: 200512568FR

PATIENT
  Age: 9 Year
  Sex: Female
  Weight: 29 kg

DRUGS (4)
  1. LASIX [Suspect]
     Route: 048
     Dates: start: 20050619, end: 20050620
  2. ENALAPRIL MALEATE [Suspect]
     Route: 048
     Dates: start: 20050619, end: 20050620
  3. PERFALGAN [Concomitant]
     Indication: CARDIAC OPERATION
     Route: 042
     Dates: start: 20050615
  4. UNKNOWN DRUG [Concomitant]
     Indication: CARDIAC OPERATION
     Dates: start: 20050615

REACTIONS (4)
  - ANURIA [None]
  - BLOOD PRESSURE DECREASED [None]
  - DIALYSIS [None]
  - RENAL FAILURE ACUTE [None]
